FAERS Safety Report 24992275 (Version 2)
Quarter: 2025Q1

REPORT INFORMATION
  Report Type: Spontaneous
  Country: US (occurrence: US)
  Receive Date: 20250220
  Receipt Date: 20250321
  Transmission Date: 20250409
  Serious: Yes (Death)
  Sender: MITSUBISHI TANABE PHARMA
  Company Number: US-MTPC-MTPA2025-0003371

PATIENT
  Age: 23 Year
  Sex: Male

DRUGS (2)
  1. RADICAVA ORS [Suspect]
     Active Substance: EDARAVONE
     Indication: Amyotrophic lateral sclerosis
     Route: 048
  2. RADICAVA ORS [Suspect]
     Active Substance: EDARAVONE
     Indication: Amyotrophic lateral sclerosis
     Route: 048

REACTIONS (1)
  - Death [Fatal]

NARRATIVE: CASE EVENT DATE: 20250131
